FAERS Safety Report 8202406-1 (Version None)
Quarter: 2012Q1

REPORT INFORMATION
  Report Type: 
  Country: None (occurrence: None)
  Receive Date: 20120312
  Receipt Date: 20120224
  Transmission Date: 20120608
  Serious: No
  Sender: FDA-Public Use
  Company Number: US-ROXANE LABORATORIES, INC.-2012-RO-00727RO

PATIENT
  Sex: Female

DRUGS (3)
  1. FLUTICASONE PROPIONATE [Suspect]
     Route: 045
  2. ALLEGRA [Concomitant]
  3. DAYQUIL [Concomitant]

REACTIONS (3)
  - ALLERGIC SINUSITIS [None]
  - DRY THROAT [None]
  - UPPER-AIRWAY COUGH SYNDROME [None]
